FAERS Safety Report 9270282 (Version 2)
Quarter: 2013Q2

REPORT INFORMATION
  Report Type: Spontaneous
  Country: JP (occurrence: JP)
  Receive Date: 20130503
  Receipt Date: 20130515
  Transmission Date: 20140414
  Serious: Yes (Hospitalization)
  Sender: FDA-Public Use
  Company Number: JP-009507513-1305JPN000195

PATIENT
  Age: 73 Year
  Sex: Female

DRUGS (4)
  1. JANUVIA TABLETS 50MG [Suspect]
     Indication: TYPE 2 DIABETES MELLITUS
     Dosage: 50 MG, QD
     Route: 048
     Dates: start: 20120427
  2. VOLTAREN [Concomitant]
     Dosage: DAILY DOSAGE UNKNOWN, BID
     Route: 048
  3. METGLUCO [Concomitant]
     Dosage: 1500 MG, QD, DIVIDED DOSE FREQUENCY UNKNOWN
     Route: 048
     Dates: end: 20120917
  4. METGLUCO [Concomitant]
     Dosage: 750 MG, QD, DIVIDED DOSE FREQUENCY UNKNOWN
     Route: 048
     Dates: start: 20120918

REACTIONS (1)
  - Proteinuria [Not Recovered/Not Resolved]
